FAERS Safety Report 5297676-6 (Version None)
Quarter: 2007Q1

REPORT INFORMATION
  Report Type: 
  Country: None (occurrence: None)
  Receive Date: 20070201
  Receipt Date: 20061030
  Transmission Date: 20070707
  Serious: No
  Sender: FDA-Public Use
  Company Number: 2006PV024172

PATIENT
  Age: 53 Year
  Sex: Female
  Weight: 88.4514 kg

DRUGS (2)
  1. BYETTA [Suspect]
     Indication: DRUG USE FOR UNKNOWN INDICATION
     Dosage: SEE IMAGE
     Route: 058
     Dates: start: 20060901, end: 20061001
  2. BYETTA [Suspect]
     Indication: DRUG USE FOR UNKNOWN INDICATION
     Dosage: SEE IMAGE
     Route: 058
     Dates: start: 20061001

REACTIONS (6)
  - DRUG INEFFECTIVE [None]
  - FEELING ABNORMAL [None]
  - HYPERHIDROSIS [None]
  - INJECTION SITE PAIN [None]
  - INJECTION SITE RASH [None]
  - TREMOR [None]
